FAERS Safety Report 22841497 (Version 4)
Quarter: 2024Q3

REPORT INFORMATION
  Report Type: Spontaneous
  Country: JP (occurrence: JP)
  Receive Date: 20230821
  Receipt Date: 20240924
  Transmission Date: 20241016
  Serious: Yes (Hospitalization, Other)
  Sender: BRISTOL MYERS SQUIBB
  Company Number: JP-ONO-2023JP020900

PATIENT
  Age: 49 Year
  Sex: Female

DRUGS (7)
  1. OPDIVO [Suspect]
     Active Substance: NIVOLUMAB
     Indication: Gastric cancer
     Route: 041
     Dates: start: 202208
  2. TS-1 [Concomitant]
     Active Substance: GIMERACIL\OTERACIL POTASSIUM\TEGAFUR
     Indication: Gastric cancer
     Dosage: 100 MG
     Dates: start: 202208
  3. TS-1 [Concomitant]
     Active Substance: GIMERACIL\OTERACIL POTASSIUM\TEGAFUR
     Dosage: 100 MG
     Dates: start: 202212, end: 202302
  4. TS-1 [Concomitant]
     Active Substance: GIMERACIL\OTERACIL POTASSIUM\TEGAFUR
     Dosage: 100 MG
     Dates: start: 202304
  5. OXALIPLATIN [Concomitant]
     Active Substance: OXALIPLATIN
     Indication: Gastric cancer
     Dates: start: 202208
  6. OXALIPLATIN [Concomitant]
     Active Substance: OXALIPLATIN
     Dates: start: 202212, end: 202302
  7. OXALIPLATIN [Concomitant]
     Active Substance: OXALIPLATIN
     Dates: start: 202304

REACTIONS (4)
  - Immune-mediated hepatitis [Recovering/Resolving]
  - Neuropathy peripheral [Unknown]
  - Rash [Unknown]
  - Platelet count decreased [Unknown]

NARRATIVE: CASE EVENT DATE: 20221101
